FAERS Safety Report 6208731-8 (Version None)
Quarter: 2009Q2

REPORT INFORMATION
  Report Type: 
  Country: None (occurrence: None)
  Receive Date: 20090529
  Receipt Date: 20090527
  Transmission Date: 20091009
  Serious: Yes (Hospitalization)
  Sender: FDA-Public Use
  Company Number: US-BRISTOL-MYERS SQUIBB COMPANY-14638787

PATIENT
  Age: 54 Year
  Sex: Female
  Weight: 78 kg

DRUGS (6)
  1. IXEMPRA KIT [Suspect]
     Indication: BREAST CANCER METASTATIC
     Dosage: 16 MG/M2 IV OVER 1 HR ON DAYS 1,8 AND 15.START DATE OF FIRST COURSE:02APR09.
     Route: 042
     Dates: start: 20090402, end: 20090402
  2. BEVACIZUMAB [Suspect]
     Indication: BREAST CANCER METASTATIC
     Dosage: 10 MG/KG IV OVER 30-90 MINS ON DAYS 1 AND 15.START DATE OF FIRST COURSE:02APR09.
     Route: 042
     Dates: start: 20090402, end: 20090402
  3. COLACE [Concomitant]
     Route: 048
  4. EFFEXOR [Concomitant]
     Route: 048
  5. METHADONE [Concomitant]
  6. OXYCODONE [Concomitant]
     Dosage: OXYCODONE 5 MG,1-2 PRN
     Route: 048

REACTIONS (4)
  - DEHYDRATION [None]
  - GASTROINTESTINAL HAEMORRHAGE [None]
  - NAUSEA [None]
  - VOMITING [None]
